FAERS Safety Report 10109393 (Version 1)
Quarter: 2014Q2

REPORT INFORMATION
  Report Type: Spontaneous
  Country: US (occurrence: None)
  Receive Date: 20140421
  Receipt Date: 20140421
  Transmission Date: 20141212
  Serious: No
  Sender: FDA-Public Use
  Company Number: AEGR000284

PATIENT
  Age: 68 Year
  Sex: Female
  Weight: 71.2 kg

DRUGS (3)
  1. JUXTAPID [Suspect]
     Indication: BLOOD CHOLESTEROL INCREASED
     Route: 048
     Dates: end: 201402
  2. LISINOPRIL (LISINOPRIL) [Concomitant]
  3. NEXIUM (ESOMEPRAZOLE MAGNESIUM) [Concomitant]

REACTIONS (5)
  - Off label use [None]
  - Inappropriate schedule of drug administration [None]
  - Abdominal pain upper [None]
  - Nausea [None]
  - Diarrhoea [None]
